FAERS Safety Report 8294691-5 (Version None)
Quarter: 2012Q2

REPORT INFORMATION
  Report Type: 
  Country: None (occurrence: None)
  Receive Date: 20120418
  Receipt Date: 20120409
  Transmission Date: 20120825
  Serious: Yes (Other)
  Sender: FDA-Public Use
  Company Number: JP-JNJFOC-20120405496

PATIENT

DRUGS (3)
  1. TRAMADOL HYDROCHLORIDE AND ACETAMINOPHEN [Suspect]
     Dosage: UPTO 8 TABLETS PER DAY
     Route: 048
     Dates: end: 20120408
  2. FENTANYL-100 [Suspect]
     Indication: PRODUCT USED FOR UNKNOWN INDICATION
     Route: 062
  3. TRAMADOL HYDROCHLORIDE AND ACETAMINOPHEN [Suspect]
     Indication: PRODUCT USED FOR UNKNOWN INDICATION
     Dosage: 3 TO 4 TABLETS (UP TO APPROXIMATELY 6 TABLETS PER DAY) WAS USED ON AN AS NEEDED BASIS.
     Route: 048

REACTIONS (3)
  - PNEUMONIA ASPIRATION [None]
  - DEPRESSED LEVEL OF CONSCIOUSNESS [None]
  - HAEMATURIA [None]
